FAERS Safety Report 6995276-0 (Version None)
Quarter: 2010Q3

REPORT INFORMATION
  Report Type: 
  Country: None (occurrence: None)
  Receive Date: 20100915
  Receipt Date: 20100830
  Transmission Date: 20110219
  Serious: Yes (Hospitalization)
  Sender: FDA-Public Use
  Company Number: 2010AC000132

PATIENT
  Age: 84 Year
  Sex: Male

DRUGS (14)
  1. DIGOXIN [Suspect]
     Indication: PRODUCT USED FOR UNKNOWN INDICATION
     Dosage: PO
     Route: 048
     Dates: start: 20080201
  2. DIGOXIN [Suspect]
     Indication: PRODUCT USED FOR UNKNOWN INDICATION
     Dosage: 0.125 MG;TID;PO
     Route: 048
     Dates: start: 20070901, end: 20080811
  3. DIGOXIN [Suspect]
     Indication: PRODUCT USED FOR UNKNOWN INDICATION
     Dosage: 0.625 MG;TID;PO
     Route: 048
     Dates: start: 20080814
  4. MAXZIDE [Concomitant]
  5. COUMADIN [Concomitant]
  6. INDERAL [Concomitant]
  7. ASPIRIN [Concomitant]
  8. VASOTEC [Concomitant]
  9. LUMAGIN EYE DROPS [Concomitant]
  10. ALPHAGAN [Concomitant]
  11. LASIX [Concomitant]
  12. FLOMAX [Concomitant]
  13. IRON [Concomitant]
  14. OXYGEN [Concomitant]

REACTIONS (38)
  - ANAEMIA [None]
  - ANXIETY [None]
  - AORTIC VALVE INCOMPETENCE [None]
  - BLOOD CREATININE INCREASED [None]
  - BLOOD UREA INCREASED [None]
  - BREATH SOUNDS ABNORMAL [None]
  - BRONCHITIS CHRONIC [None]
  - BUNDLE BRANCH BLOCK LEFT [None]
  - CARDIAC FAILURE CONGESTIVE [None]
  - CARDIAC VALVE DISEASE [None]
  - CARDIOACTIVE DRUG LEVEL INCREASED [None]
  - CARDIOMEGALY [None]
  - CHOLELITHIASIS [None]
  - COLONIC POLYP [None]
  - COUGH [None]
  - DECREASED APPETITE [None]
  - DILATATION VENTRICULAR [None]
  - DYSPNOEA [None]
  - FATIGUE [None]
  - GLAUCOMA [None]
  - HEPATIC ENZYME INCREASED [None]
  - HYPERTENSIVE HEART DISEASE [None]
  - INJURY [None]
  - LEFT VENTRICULAR HYPERTROPHY [None]
  - LUNG DISORDER [None]
  - MACULAR DEGENERATION [None]
  - MITRAL VALVE INCOMPETENCE [None]
  - NODAL RHYTHM [None]
  - OVERDOSE [None]
  - PAIN [None]
  - PAIN IN EXTREMITY [None]
  - PROTEIN URINE PRESENT [None]
  - RENAL DISORDER [None]
  - RETINAL DEGENERATION [None]
  - SCAR [None]
  - VENTRICULAR HYPERTROPHY [None]
  - VITREOUS DEGENERATION [None]
  - WHEEZING [None]
